FAERS Safety Report 23330381 (Version 2)
Quarter: 2023Q4

REPORT INFORMATION
  Report Type: Spontaneous
  Country: CN (occurrence: CN)
  Receive Date: 20231222
  Receipt Date: 20231228
  Transmission Date: 20240109
  Serious: Yes (Hospitalization, Other)
  Sender: FDA-Public Use
  Company Number: CN-SA-2023SA392413

PATIENT
  Age: 58 Year
  Sex: Male

DRUGS (4)
  1. OXALIPLATIN [Suspect]
     Active Substance: OXALIPLATIN
     Indication: Adenocarcinoma gastric
     Dosage: 240 MG, Q3W
     Dates: start: 201803, end: 2018
  2. OXALIPLATIN [Suspect]
     Active Substance: OXALIPLATIN
     Dosage: 230 MG, Q3W (FOUR ADDITIONAL CYCLES,)
     Dates: start: 2018, end: 2018
  3. TEGAFUR [Concomitant]
     Active Substance: TEGAFUR
     Indication: Adenocarcinoma gastric
     Dosage: 60 MG, BID (DAY1-14)
     Dates: start: 2018
  4. TEGAFUR [Concomitant]
     Active Substance: TEGAFUR
     Dosage: 60 MG, BID (FOUR ADDITIONAL CYCLES,)
     Dates: start: 2018, end: 2018

REACTIONS (9)
  - Liver injury [Unknown]
  - Hepatomegaly [Unknown]
  - Hepatic fibrosis [Unknown]
  - Hepatic atrophy [Unknown]
  - Hyperplasia [Unknown]
  - Non-cirrhotic portal hypertension [Unknown]
  - Gastric varices [Unknown]
  - Varices oesophageal [Unknown]
  - Splenomegaly [Unknown]

NARRATIVE: CASE EVENT DATE: 20191001
